FAERS Safety Report 16747702 (Version 1)
Quarter: 2019Q3

REPORT INFORMATION
  Report Type: Spontaneous
  Country: FR (occurrence: FR)
  Receive Date: 20190827
  Receipt Date: 20190827
  Transmission Date: 20191005
  Serious: Yes (Other)
  Sender: FDA-Public Use
  Company Number: FR-TEVA-2019-FR-1096583

PATIENT
  Age: 25 Year
  Sex: Female
  Weight: 63 kg

DRUGS (2)
  1. DIAZEPAM. [Suspect]
     Active Substance: DIAZEPAM
     Dates: start: 20180605, end: 20180605
  2. ALCOHOL. [Suspect]
     Active Substance: ALCOHOL
     Dates: start: 20180605, end: 20180605

REACTIONS (1)
  - Chemical submission [Recovered/Resolved with Sequelae]

NARRATIVE: CASE EVENT DATE: 20180605
